FAERS Safety Report 6716777-6 (Version None)
Quarter: 2010Q2

REPORT INFORMATION
  Report Type: 
  Country: None (occurrence: None)
  Receive Date: 20100510
  Receipt Date: 20100504
  Transmission Date: 20101027
  Serious: Yes (Death, Hospitalization)
  Sender: FDA-Public Use
  Company Number: FR-CELGENEUS-056-21880-10050210

PATIENT
  Age: 85 Year
  Sex: Female
  Weight: 48 kg

DRUGS (1)
  1. REVLIMID [Suspect]
     Indication: LYMPHANGIOLEIOMYOMATOSIS
     Route: 048
     Dates: start: 20100323, end: 20100406

REACTIONS (1)
  - DEATH [None]
